FAERS Safety Report 4745169-4 (Version None)
Quarter: 2005Q3

REPORT INFORMATION
  Report Type: 
  Country: None (occurrence: None)
  Receive Date: 20050815
  Receipt Date: 20040416
  Transmission Date: 20060218
  Serious: Yes (Death, Other)
  Sender: FDA-Public Use
  Company Number: PHHO2004JP05805

PATIENT
  Age: 70 Year
  Sex: Male
  Weight: 65 kg

DRUGS (10)
  1. GLEEVEC [Suspect]
     Indication: CHRONIC MYELOID LEUKAEMIA
     Dosage: 400 MG, QD
     Route: 048
     Dates: start: 20020403, end: 20020430
  2. GLEEVEC [Suspect]
     Dosage: UNK, NO TREATMENT
     Dates: start: 20020501, end: 20020521
  3. GLEEVEC [Suspect]
     Dosage: 400 MG, QD
     Route: 048
     Dates: start: 20020522, end: 20030907
  4. ALOSITOL [Concomitant]
     Indication: CHRONIC MYELOID LEUKAEMIA
     Route: 048
     Dates: start: 20020403, end: 20021008
  5. ULCERMIN [Concomitant]
     Route: 048
     Dates: start: 20020403, end: 20030907
  6. SIGMART [Concomitant]
     Dates: start: 20020403
  7. GASTER D [Concomitant]
     Route: 048
     Dates: start: 20020403
  8. GLYBURIDE [Concomitant]
     Route: 048
     Dates: start: 20020305
  9. DAONIL [Concomitant]
     Route: 048
     Dates: start: 20020403, end: 20030907
  10. ZADITEN [Concomitant]
     Route: 048
     Dates: start: 20020730, end: 20021008

REACTIONS (25)
  - ALANINE AMINOTRANSFERASE INCREASED [None]
  - ASPARTATE AMINOTRANSFERASE INCREASED [None]
  - BASOPHILIA [None]
  - BLOOD ALKALINE PHOSPHATASE INCREASED [None]
  - BLOOD BILIRUBIN INCREASED [None]
  - BLOOD CREATININE INCREASED [None]
  - BLOOD LACTATE DEHYDROGENASE INCREASED [None]
  - BLOOD UREA DECREASED [None]
  - BLOOD UREA INCREASED [None]
  - BLOOD URIC ACID DECREASED [None]
  - EOSINOPHIL COUNT INCREASED [None]
  - ERYTHROPENIA [None]
  - GAMMA-GLUTAMYLTRANSFERASE INCREASED [None]
  - HAEMATOCRIT DECREASED [None]
  - HAEMOGLOBIN DECREASED [None]
  - LARGE INTESTINE CARCINOMA [None]
  - LEUKOPENIA [None]
  - LYMPHOCYTE COUNT DECREASED [None]
  - MALIGNANT NEOPLASM PROGRESSION [None]
  - MONOCYTE COUNT INCREASED [None]
  - MYALGIA [None]
  - NEUTROPHIL COUNT INCREASED [None]
  - PLATELET COUNT DECREASED [None]
  - RASH [None]
  - WHITE BLOOD CELL COUNT INCREASED [None]
